FAERS Safety Report 15258733 (Version 1)
Quarter: 2018Q3

REPORT INFORMATION
  Report Type: Spontaneous
  Country: NL (occurrence: NL)
  Receive Date: 20180809
  Receipt Date: 20180809
  Transmission Date: 20181010
  Serious: Yes (Hospitalization, Other)
  Sender: FDA-Public Use
  Company Number: NL-TEVA-2018-NL-937444

PATIENT
  Sex: Male

DRUGS (2)
  1. SOTALOL HYDROCHLORIDE. [Suspect]
     Active Substance: SOTALOL HYDROCHLORIDE
     Indication: ATRIAL FIBRILLATION
     Dosage: 320 MILLIGRAM DAILY;
     Route: 048
     Dates: end: 20170718
  2. METOPROLOL. [Concomitant]
     Active Substance: METOPROLOL
     Indication: ATRIAL FIBRILLATION
     Dosage: UNK
     Route: 065
     Dates: start: 20170723, end: 20170725

REACTIONS (3)
  - Renal impairment [Unknown]
  - Atrial fibrillation [Recovered/Resolved]
  - Bradycardia [Unknown]

NARRATIVE: CASE EVENT DATE: 20170725
